FAERS Safety Report 11438431 (Version 1)
Quarter: 2015Q3

REPORT INFORMATION
  Report Type: Spontaneous
  Country: US (occurrence: US)
  Receive Date: 20150901
  Receipt Date: 20150901
  Transmission Date: 20151125
  Serious: No
  Sender: FDA-Public Use
  Company Number: US-PAR PHARMACEUTICAL, INC-2015SCPR014135

PATIENT

DRUGS (2)
  1. BREVITAL SODIUM [Suspect]
     Active Substance: METHOHEXITAL SODIUM
     Dosage: UNK UNK, SINGLE
     Route: 042
     Dates: start: 20150706, end: 20150706
  2. BREVITAL SODIUM [Suspect]
     Active Substance: METHOHEXITAL SODIUM
     Indication: GENERAL ANAESTHESIA
     Dosage: 100 MG, SINGLE
     Route: 042
     Dates: start: 20150701, end: 20150701

REACTIONS (2)
  - Product quality issue [Unknown]
  - Drug ineffective [Unknown]

NARRATIVE: CASE EVENT DATE: 20150701
